FAERS Safety Report 16712859 (Version 1)
Quarter: 2019Q3

REPORT INFORMATION
  Report Type: Spontaneous
  Country: US (occurrence: US)
  Receive Date: 20190817
  Receipt Date: 20190817
  Transmission Date: 20191004
  Serious: No
  Sender: FDA-Public Use
  Company Number: US-DRREDDYS-USA/USA/19/0113017

PATIENT
  Sex: Male

DRUGS (1)
  1. DIVALPROEX SODIUM DR [Suspect]
     Active Substance: DIVALPROEX SODIUM
     Indication: PRODUCT USED FOR UNKNOWN INDICATION
     Dosage: REGULAR DOSE WAS 4 CAPSULES IN THE MORNING AND 4 CAPSULES AT NIGHT (SPRINKLES)
     Route: 048
     Dates: start: 20190712

REACTIONS (3)
  - Wrong technique in product usage process [Unknown]
  - Overdose [Unknown]
  - Abdominal discomfort [Unknown]
